FAERS Safety Report 18024122 (Version 1)
Quarter: 2020Q3

REPORT INFORMATION
  Report Type: Spontaneous
  Country: US (occurrence: US)
  Receive Date: 20200714
  Receipt Date: 20200714
  Transmission Date: 20201103
  Serious: Yes (Hospitalization)
  Sender: FDA-Public Use
  Company Number: None

PATIENT
  Age: 44 Year
  Sex: Female

DRUGS (32)
  1. ATENOLOL. [Concomitant]
     Active Substance: ATENOLOL
  2. CEPHALEXIN. [Concomitant]
     Active Substance: CEPHALEXIN
  3. ERYTHROMYCIN OIN [Concomitant]
  4. SYNJARDY [Concomitant]
     Active Substance: EMPAGLIFLOZIN\METFORMIN HYDROCHLORIDE
  5. VENLAFAXINE [Concomitant]
     Active Substance: VENLAFAXINE HYDROCHLORIDE
  6. CLONAZEPAM. [Concomitant]
     Active Substance: CLONAZEPAM
  7. CYMBALTA [Concomitant]
     Active Substance: DULOXETINE HYDROCHLORIDE
  8. FLUCONAZOLE. [Concomitant]
     Active Substance: FLUCONAZOLE
  9. LISINOPRIL. [Concomitant]
     Active Substance: LISINOPRIL
  10. PRAVASTATIN. [Concomitant]
     Active Substance: PRAVASTATIN
  11. TROKEN DI XR [Concomitant]
  12. TRULICITY [Concomitant]
     Active Substance: DULAGLUTIDE
  13. OMEGA?3 ACIDS [Concomitant]
     Active Substance: OMEGA-3 FATTY ACIDS
  14. TALTZ [Suspect]
     Active Substance: IXEKIZUMAB
     Indication: PSORIASIS
     Dosage: OTHER DOSE:1 SYR; Q4W SQ?
     Route: 058
     Dates: start: 20180525
  15. APAP/CODEINE [Concomitant]
     Active Substance: ACETAMINOPHEN\CODEINE PHOSPHATE
  16. SIMVASTATIN. [Concomitant]
     Active Substance: SIMVASTATIN
  17. TRINTELLIX [Concomitant]
     Active Substance: VORTIOXETINE HYDROBROMIDE
  18. ACYCLOVIR. [Concomitant]
     Active Substance: ACYCLOVIR
  19. AMITIZA [Concomitant]
     Active Substance: LUBIPROSTONE
  20. GABAPENTIN. [Concomitant]
     Active Substance: GABAPENTIN
  21. HYDROXYZ HCL [Concomitant]
     Active Substance: HYDROXYZINE HYDROCHLORIDE
  22. MOMETASONE [Concomitant]
     Active Substance: MOMETASONE
  23. CLOBETASOL [Concomitant]
     Active Substance: CLOBETASOL
  24. FENOFIBRATE. [Concomitant]
     Active Substance: FENOFIBRATE
  25. LINZESS [Concomitant]
     Active Substance: LINACLOTIDE
  26. MONTELUKAST [Concomitant]
     Active Substance: MONTELUKAST SODIUM
  27. TEMAZEPAM. [Concomitant]
     Active Substance: TEMAZEPAM
  28. BETAMETH DIP [Concomitant]
  29. CALCIPOTRIEN CRE [Concomitant]
  30. CYCLOBENZAPR [Concomitant]
     Active Substance: CYCLOBENZAPRINE
  31. LEVETIRACETA [Concomitant]
     Active Substance: LEVETIRACETAM
  32. OMEPRA/BICAR [Concomitant]

REACTIONS (1)
  - Skin irritation [None]

NARRATIVE: CASE EVENT DATE: 20200713
